FAERS Safety Report 13285106 (Version 1)
Quarter: 2017Q1

REPORT INFORMATION
  Report Type: Spontaneous
  Country: US (occurrence: US)
  Receive Date: 20170301
  Receipt Date: 20170301
  Transmission Date: 20170428
  Serious: Yes (Other)
  Sender: FDA-Public Use
  Company Number: None

PATIENT
  Age: 2 Year
  Sex: Male
  Weight: 13.95 kg

DRUGS (3)
  1. MOTRIN [Concomitant]
     Active Substance: IBUPROFEN
  2. AMOXACILLIN [Concomitant]
  3. TAMIFLU [Suspect]
     Active Substance: OSELTAMIVIR PHOSPHATE
     Indication: INFLUENZA
     Dosage: ?          OTHER STRENGTH:MG/ML;QUANTITY:1 TEASPOON(S);?
     Route: 048

REACTIONS (3)
  - Hallucination [None]
  - Screaming [None]
  - Formication [None]

NARRATIVE: CASE EVENT DATE: 20170228
